FAERS Safety Report 5224730-7 (Version None)
Quarter: 2007Q1

REPORT INFORMATION
  Report Type: 
  Country: None (occurrence: None)
  Receive Date: 20070129
  Receipt Date: 20070129
  Transmission Date: 20070707
  Serious: Yes (Other)
  Sender: FDA-Public Use
  Company Number: None

PATIENT
  Age: 58 Year
  Sex: Female
  Weight: 112.9457 kg

DRUGS (4)
  1. MOBIC [Suspect]
     Indication: ARTHRITIS
     Dosage: 7.5 MG DAILY ORAL, 15 MG DAILY ORAL
     Route: 048
     Dates: start: 20060901, end: 20061201
  2. MOBIC [Suspect]
     Indication: ARTHRITIS
     Dosage: 7.5 MG DAILY ORAL, 15 MG DAILY ORAL
     Route: 048
     Dates: start: 20061201, end: 20070116
  3. INDERAL [Concomitant]
  4. HYDROCHLOROTHIAZIDE [Concomitant]

REACTIONS (2)
  - CONDITION AGGRAVATED [None]
  - PALPITATIONS [None]
